FAERS Safety Report 9606378 (Version 1)
Quarter: 2013Q4

REPORT INFORMATION
  Report Type: Spontaneous
  Country: US (occurrence: US)
  Receive Date: 20131008
  Receipt Date: 20131008
  Transmission Date: 20140711
  Serious: No
  Sender: FDA-Public Use
  Company Number: US-AMGEN-USASP2013052696

PATIENT
  Age: 82 Year
  Sex: Female

DRUGS (6)
  1. PROLIA [Suspect]
     Indication: PRODUCT USED FOR UNKNOWN INDICATION
     Route: 065
  2. PEPCID                             /00706001/ [Concomitant]
  3. NORVASC [Concomitant]
  4. HYDROCODONE [Concomitant]
  5. VITAMIN C                          /00008001/ [Concomitant]
  6. FISH OIL [Concomitant]

REACTIONS (1)
  - Weight decreased [Unknown]
